FAERS Safety Report 14993911 (Version 11)
Quarter: 2019Q3

REPORT INFORMATION
  Report Type: Report from Study
  Country: FR (occurrence: FR)
  Receive Date: 20180611
  Receipt Date: 20190702
  Transmission Date: 20191004
  Serious: Yes (Death, Life-Threatening, Hospitalization)
  Sender: FDA-Public Use
  Company Number: FR-ROCHE-2135760

PATIENT
  Age: 74 Year
  Sex: Male
  Weight: 56 kg

DRUGS (24)
  1. MODOPAR [Concomitant]
     Active Substance: BENSERAZIDE HYDROCHLORIDE\LEVODOPA
     Route: 065
     Dates: start: 201101
  2. GUTRON [Concomitant]
     Active Substance: MIDODRINE
     Indication: HYPOTENSION
     Route: 065
     Dates: start: 201806
  3. AZILECT [Concomitant]
     Active Substance: RASAGILINE MESYLATE
     Route: 065
     Dates: start: 201101
  4. CORDARONE [Concomitant]
     Active Substance: AMIODARONE HYDROCHLORIDE
     Indication: ATRIAL FIBRILLATION
     Route: 065
     Dates: start: 201805, end: 20180522
  5. LOVENOX [Concomitant]
     Active Substance: ENOXAPARIN SODIUM
     Route: 065
     Dates: start: 20180604
  6. OBINUTUZUMAB. [Suspect]
     Active Substance: OBINUTUZUMAB
     Indication: MANTLE CELL LYMPHOMA
     Dosage: ON DAYS 1, 8 AND 15 OF THE FIRST CYCLE ONLY AND ON DAY 1 OF EACH SUBSEQUENT CYCLE (CYCLE LENGTH 21 D
     Route: 042
     Dates: start: 20180420, end: 20180531
  7. GRANOCYTE [Concomitant]
     Active Substance: LENOGRASTIM
     Indication: NEUTROPENIA
     Route: 065
     Dates: start: 20180517, end: 20180523
  8. NORMACOL [STERCULIA URENS GUM] [Concomitant]
     Indication: CONSTIPATION
     Route: 065
     Dates: start: 201806, end: 201806
  9. CEFOTAXIME [Concomitant]
     Active Substance: CEFOTAXIME SODIUM
     Indication: ASCITES
     Route: 065
     Dates: start: 20180709, end: 20180724
  10. AMIKACINE [AMIKACIN] [Concomitant]
     Active Substance: AMIKACIN
     Indication: ASCITES
     Route: 065
     Dates: start: 20180709, end: 20180709
  11. AUGMENTIN [Concomitant]
     Active Substance: AMOXICILLIN\CLAVULANATE POTASSIUM
     Indication: PYREXIA
     Route: 065
     Dates: start: 20180427, end: 20180503
  12. LASILIX [FUROSEMIDE] [Concomitant]
     Active Substance: FUROSEMIDE
     Indication: ACUTE PULMONARY OEDEMA
     Route: 065
     Dates: start: 201805, end: 201805
  13. TAZOCILLINE [Concomitant]
     Active Substance: PIPERACILLIN SODIUM\TAZOBACTAM SODIUM
     Indication: PYREXIA
     Route: 065
     Dates: start: 20180517, end: 20180518
  14. VANCOMYCIN [Concomitant]
     Active Substance: VANCOMYCIN
     Indication: ASCITES
     Route: 065
     Dates: start: 20180710
  15. SINEMET LP [Concomitant]
     Active Substance: CARBIDOPA\LEVODOPA
     Route: 065
     Dates: start: 201803
  16. NEUPRO [Concomitant]
     Active Substance: ROTIGOTINE
     Route: 065
     Dates: start: 201101
  17. SERESTA [Concomitant]
     Active Substance: OXAZEPAM
     Indication: ANXIETY
     Route: 065
     Dates: start: 201806
  18. MELATONINE [Concomitant]
     Active Substance: MELATONIN
     Route: 065
     Dates: start: 201803
  19. LASILIX [FUROSEMIDE] [Concomitant]
     Active Substance: FUROSEMIDE
     Indication: OEDEMA PERIPHERAL
     Route: 065
     Dates: start: 20180504
  20. ARANESP [Concomitant]
     Active Substance: DARBEPOETIN ALFA
     Indication: ANAEMIA
     Route: 065
     Dates: start: 20180511
  21. PRIMPERAN [Concomitant]
     Active Substance: METOCLOPRAMIDE HYDROCHLORIDE
     Indication: PROPHYLAXIS
     Route: 065
     Dates: start: 201806
  22. ATEZOLIZUMAB. [Suspect]
     Active Substance: ATEZOLIZUMAB
     Indication: MANTLE CELL LYMPHOMA
     Dosage: MOST RECENT DOSE ON 11/MAY/2018 AT 13:22
     Route: 042
     Dates: start: 20180420, end: 20180531
  23. MIANSERINE [MIANSERIN] [Concomitant]
     Active Substance: MIANSERIN HYDROCHLORIDE
     Route: 065
     Dates: start: 201803
  24. TAZOCILLINE [Concomitant]
     Active Substance: PIPERACILLIN SODIUM\TAZOBACTAM SODIUM
     Indication: SEPSIS
     Route: 065
     Dates: start: 20180518, end: 20180525

REACTIONS (1)
  - Cardiac failure [Not Recovered/Not Resolved]

NARRATIVE: CASE EVENT DATE: 20180531
